FAERS Safety Report 9691374 (Version 1)
Quarter: 2013Q4

REPORT INFORMATION
  Report Type: Spontaneous
  Country: TW (occurrence: TW)
  Receive Date: 20131115
  Receipt Date: 20131115
  Transmission Date: 20140711
  Serious: Yes (Other)
  Sender: FDA-Public Use
  Company Number: TW-ROXANE LABORATORIES, INC.-2013-RO-01816RO

PATIENT
  Age: 58 Year
  Sex: Male

DRUGS (9)
  1. CLARITHROMYCIN [Suspect]
     Indication: BRUCELLOSIS
  2. TACROLIMUS [Suspect]
     Indication: RENAL TRANSPLANT
     Dosage: 1.5 MG
  3. MINOCYCLINE [Concomitant]
     Indication: BRUCELLOSIS
  4. LEVOFLOXACIN [Concomitant]
     Indication: BRUCELLOSIS
  5. ASPIRIN [Concomitant]
  6. BISOPROLOL [Concomitant]
  7. GLIMEPIRIDE [Concomitant]
  8. METFORMIN [Concomitant]
  9. ATORVASTATIN [Concomitant]

REACTIONS (2)
  - Renal failure acute [Unknown]
  - Immunosuppressant drug level increased [Recovered/Resolved]
